FAERS Safety Report 9702770 (Version 2)
Quarter: 2013Q4

REPORT INFORMATION
  Report Type: Spontaneous
  Country: US (occurrence: US)
  Receive Date: 20131121
  Receipt Date: 20131216
  Transmission Date: 20140711
  Serious: Yes (Death, Life-Threatening, Hospitalization)
  Sender: FDA-Public Use
  Company Number: US-GLAXOSMITHKLINE-A1049854A

PATIENT
  Age: 84 Year
  Sex: Female

DRUGS (6)
  1. ADVAIR [Suspect]
     Indication: ASTHMA
     Dosage: 1PUFF TWICE PER DAY
     Route: 055
     Dates: start: 2004
  2. VENTOLIN [Suspect]
     Indication: ASTHMA
     Route: 055
     Dates: start: 2004
  3. METOPROLOL [Concomitant]
  4. SYNTHROID [Concomitant]
  5. CALCIUM [Concomitant]
  6. DOXEPIN [Concomitant]

REACTIONS (1)
  - Myocardial infarction [Fatal]
